FAERS Safety Report 18558920 (Version 1)
Quarter: 2020Q4

REPORT INFORMATION
  Report Type: Spontaneous
  Country: US (occurrence: US)
  Receive Date: 20201125
  Receipt Date: 20201125
  Transmission Date: 20210114
  Serious: No
  Sender: FDA-Public Use
  Company Number: None

PATIENT
  Age: 86 Year
  Sex: Female
  Weight: 64 kg

DRUGS (9)
  1. ACYCLOVIR. [Concomitant]
     Active Substance: ACYCLOVIR
  2. LOVASTATIN. [Concomitant]
     Active Substance: LOVASTATIN
  3. MULTIVITAMIN WOMEN [Concomitant]
  4. FUROSEMIDE. [Concomitant]
     Active Substance: FUROSEMIDE
  5. CAPECITABINE. [Suspect]
     Active Substance: CAPECITABINE
     Indication: COLON CANCER
     Route: 048
     Dates: start: 20201113, end: 20201119
  6. LISINOPRIL. [Concomitant]
     Active Substance: LISINOPRIL
  7. STOOL SOFTENER (DOCUSATE) [Concomitant]
     Active Substance: DOCUSATE
  8. ACYCLOVIR. [Concomitant]
     Active Substance: ACYCLOVIR
  9. VITAMIN E [Concomitant]
     Active Substance: .ALPHA.-TOCOPHEROL

REACTIONS (3)
  - Dry skin [None]
  - Rash [None]
  - Hypoaesthesia [None]

NARRATIVE: CASE EVENT DATE: 20201120
